FAERS Safety Report 14113494 (Version 1)
Quarter: 2017Q4

REPORT INFORMATION
  Report Type: Spontaneous
  Country: US (occurrence: US)
  Receive Date: 20171023
  Receipt Date: 20171023
  Transmission Date: 20180321
  Serious: No
  Sender: FDA-Public Use
  Company Number: US-ASTRAZENECA-2017SF07343

PATIENT
  Age: 74 Year
  Sex: Female

DRUGS (7)
  1. NEXIUM 24HR [Suspect]
     Active Substance: ESOMEPRAZOLE MAGNESIUM
     Indication: BARRETT^S OESOPHAGUS
     Route: 048
     Dates: start: 2016
  2. OMEGA 3 KRILL OIL [Concomitant]
     Indication: CEREBRAL DISORDER
     Dosage: 350 MG, DAILY
     Dates: start: 2015
  3. CALCIUM [Concomitant]
     Active Substance: CALCIUM
     Dosage: 600 MG, DAILY
     Dates: start: 2007
  4. NEXIUM 24HR [Suspect]
     Active Substance: ESOMEPRAZOLE MAGNESIUM
     Indication: BARRETT^S OESOPHAGUS
     Route: 048
     Dates: end: 2017
  5. COENZYME Q10 [Concomitant]
     Active Substance: UBIDECARENONE
     Indication: CEREBRAL DISORDER
     Dosage: 200 MG, DAILY
     Dates: start: 2015
  6. VITAMIN D3 [Concomitant]
     Active Substance: CHOLECALCIFEROL
     Dosage: 1000 IU, DAILY
     Dates: start: 2007
  7. VITAMIN D4 [Concomitant]
     Dosage: 1000 IU, DAILY
     Dates: start: 2015

REACTIONS (4)
  - Dizziness [Recovered/Resolved]
  - Intentional product misuse [Unknown]
  - Discomfort [Recovered/Resolved]
  - Balance disorder [Recovered/Resolved]

NARRATIVE: CASE EVENT DATE: 2016
